FAERS Safety Report 10288103 (Version 3)
Quarter: 2015Q3

REPORT INFORMATION
  Report Type: Spontaneous
  Country: US (occurrence: US)
  Receive Date: 20140709
  Receipt Date: 20150814
  Transmission Date: 20151125
  Serious: No
  Sender: FDA-Public Use
  Company Number: US-GILEAD-2013-0082853

PATIENT
  Age: 60 Year
  Sex: Male

DRUGS (13)
  1. VITAMIN D                          /00107901/ [Concomitant]
     Active Substance: ERGOCALCIFEROL
  2. K-DUR [Concomitant]
     Active Substance: POTASSIUM CHLORIDE
  3. MILK THISTLE [Concomitant]
     Active Substance: MILK THISTLE
  4. FERROUS SULFATE [Concomitant]
     Active Substance: FERROUS SULFATE\FERROUS SULFATE, DRIED
  5. FOLIC ACID. [Concomitant]
     Active Substance: FOLIC ACID
  6. LASIX [Concomitant]
     Active Substance: FUROSEMIDE
  7. PROTONIX [Concomitant]
     Active Substance: PANTOPRAZOLE SODIUM
  8. COMPAZINE [Concomitant]
     Active Substance: PROCHLORPERAZINE MALEATE
  9. ALDACTONE [Concomitant]
     Active Substance: SPIRONOLACTONE
  10. REVATIO [Concomitant]
     Active Substance: SILDENAFIL CITRATE
  11. VITAMIN B12 [Concomitant]
     Active Substance: CYANOCOBALAMIN
  12. VIDAZA [Concomitant]
     Active Substance: AZACITIDINE
  13. LETAIRIS [Suspect]
     Active Substance: AMBRISENTAN
     Indication: PULMONARY HYPERTENSION
     Dosage: 5 MG, UNK
     Route: 048
     Dates: start: 20130806, end: 20130903

REACTIONS (1)
  - Depression [Recovered/Resolved]
